FAERS Safety Report 8821392 (Version 1)
Quarter: 2012Q4

REPORT INFORMATION
  Report Type: 
  Country: JP (occurrence: JP)
  Receive Date: 20121002
  Receipt Date: 20121002
  Transmission Date: 20130627
  Serious: Yes (Hospitalization)
  Sender: FDA-Public Use
  Company Number: JP-009507513-1202USA03119

PATIENT
  Age: 76 Year
  Sex: Female

DRUGS (4)
  1. JANUVIA TABLETS 50MG [Suspect]
     Indication: DIABETES MELLITUS
     Dosage: 50 mg, qd
     Route: 048
     Dates: start: 201105, end: 201107
  2. BAYASPIRIN [Concomitant]
     Indication: THROMBOSIS PROPHYLAXIS
     Dosage: Dosage unknown during a day
     Route: 048
  3. PLAVIX [Concomitant]
     Indication: THROMBOSIS PROPHYLAXIS
     Dosage: Dosage unknown during a day
     Route: 048
  4. URSO [Concomitant]
     Indication: HEPATITIS C
     Dosage: Dosage unknown during a day
     Route: 048

REACTIONS (2)
  - Hepatitis [Recovered/Resolved]
  - Hepatic function abnormal [Recovered/Resolved]
